FAERS Safety Report 7245554-5 (Version None)
Quarter: 2011Q1

REPORT INFORMATION
  Report Type: 
  Country: None (occurrence: None)
  Receive Date: 20110126
  Receipt Date: 20110117
  Transmission Date: 20110831
  Serious: Yes (Hospitalization)
  Sender: FDA-Public Use
  Company Number: US-ASTRAZENECA-2010SE34834

PATIENT
  Age: 68 Year
  Sex: Female
  Weight: 81.6 kg

DRUGS (6)
  1. RANITIDINE [Concomitant]
     Indication: GASTRITIS PROPHYLAXIS
  2. GENERIC ALLEGRA [Concomitant]
     Indication: MULTIPLE ALLERGIES
  3. SEROQUEL [Suspect]
     Indication: BIPOLAR DISORDER
     Dosage: SEROQUEL 200 MG TABLETS- 1/2 TABLET AT DINNER, AND 2 TABLETS AT BEDTIME.
     Route: 048
     Dates: start: 20070101
  4. ZOLOFT [Concomitant]
  5. GABAPENTIN [Concomitant]
  6. SEROQUEL [Suspect]
     Indication: DEPRESSION
     Dosage: SEROQUEL 200 MG TABLETS- 1/2 TABLET AT DINNER, AND 2 TABLETS AT BEDTIME.
     Route: 048
     Dates: start: 20070101

REACTIONS (8)
  - DECREASED APPETITE [None]
  - INSOMNIA [None]
  - ARTHRITIS [None]
  - HOT FLUSH [None]
  - HYPERCHOLESTEROLAEMIA [None]
  - DRUG DOSE OMISSION [None]
  - SURGERY [None]
  - ARTHRALGIA [None]
